FAERS Safety Report 7032696-2 (Version None)
Quarter: 2010Q4

REPORT INFORMATION
  Report Type: 
  Country: None (occurrence: None)
  Receive Date: 20101007
  Receipt Date: 20101004
  Transmission Date: 20110411
  Serious: Yes (Hospitalization)
  Sender: FDA-Public Use
  Company Number: IT-ROCHE-729042

PATIENT
  Sex: Female

DRUGS (6)
  1. ROCEPHIN [Suspect]
     Route: 042
     Dates: start: 20100716, end: 20100721
  2. TICLID [Concomitant]
  3. SIMVASTATINA [Concomitant]
  4. LACIREX [Concomitant]
  5. RIVOTRIL [Concomitant]
  6. LANSOPRAZOLE [Concomitant]

REACTIONS (2)
  - HALLUCINATION [None]
  - PSYCHOMOTOR HYPERACTIVITY [None]
